FAERS Safety Report 10226804 (Version 1)
Quarter: 2014Q2

REPORT INFORMATION
  Report Type: Spontaneous
  Country: US (occurrence: US)
  Receive Date: 20140610
  Receipt Date: 20140610
  Transmission Date: 20141212
  Serious: Yes (Other)
  Sender: FDA-Public Use
  Company Number: US-ROCHE-1410232

PATIENT
  Age: 83 Year
  Sex: Male

DRUGS (1)
  1. GAZYVA [Suspect]
     Indication: PRODUCT USED FOR UNKNOWN INDICATION
     Route: 065

REACTIONS (10)
  - Sinus bradycardia [Unknown]
  - Hypotension [Unknown]
  - Dyspnoea [Unknown]
  - Loss of consciousness [Unknown]
  - Pulse absent [Unknown]
  - Flushing [Unknown]
  - Lymphocyte count decreased [Unknown]
  - B-lymphocyte count decreased [Unknown]
  - Heart rate decreased [Unknown]
  - Blood pressure decreased [Unknown]
